FAERS Safety Report 18771744 (Version 1)
Quarter: 2021Q1

REPORT INFORMATION
  Report Type: Spontaneous
  Country: US (occurrence: US)
  Receive Date: 20210122
  Receipt Date: 20210122
  Transmission Date: 20210419
  Serious: No
  Sender: FDA-Public Use
  Company Number: US-PCCINC-2020-PEL-000393

PATIENT

DRUGS (3)
  1. GABLOFEN [Suspect]
     Active Substance: BACLOFEN
     Indication: HEAD INJURY
  2. GABLOFEN [Suspect]
     Active Substance: BACLOFEN
     Indication: MUSCLE SPASTICITY
     Dosage: 630 MICROGRAM PER DAY
     Route: 037
  3. GABLOFEN [Suspect]
     Active Substance: BACLOFEN
     Indication: BRAIN INJURY

REACTIONS (2)
  - Underdose [Unknown]
  - Overdose [Unknown]
